FAERS Safety Report 9999121 (Version 1)
Quarter: 2014Q1

REPORT INFORMATION
  Report Type: Spontaneous
  Country: US (occurrence: None)
  Receive Date: 20140311
  Receipt Date: 20140311
  Transmission Date: 20141002
  Serious: Yes (Other)
  Sender: FDA-Public Use
  Company Number: None

PATIENT
  Age: 48 Year
  Sex: Female
  Weight: 60.78 kg

DRUGS (1)
  1. ATORVASTATIN 10 MG RANBAXY [Suspect]
     Indication: BLOOD CHOLESTEROL INCREASED
     Route: 048
     Dates: start: 20140209, end: 20140307

REACTIONS (9)
  - Nausea [None]
  - Abdominal distension [None]
  - Abdominal pain [None]
  - Pruritus [None]
  - Burning sensation [None]
  - Product quality issue [None]
  - Product label issue [None]
  - Memory impairment [None]
  - Product quality issue [None]
